FAERS Safety Report 8877175 (Version 1)
Quarter: 2012Q4

REPORT INFORMATION
  Report Type: 
  Country: US (occurrence: US)
  Receive Date: 20121030
  Receipt Date: 20121030
  Transmission Date: 20130627
  Serious: No
  Sender: FDA-Public Use
  Company Number: US-VERTEX PHARMACEUTICAL INC.-2012-023695

PATIENT
  Age: 57 Year
  Sex: Male
  Weight: 102 kg

DRUGS (7)
  1. VX-950 [Suspect]
     Indication: HEPATITIS C
     Dosage: 750 mg, tid
     Route: 048
  2. PEGASYS [Concomitant]
     Indication: HEPATITIS C
  3. RIBAVIRIN [Concomitant]
     Indication: HEPATITIS C
     Dosage: 200 mg, UNK
  4. JALYN [Concomitant]
  5. TRANDOLAPRIL [Concomitant]
     Dosage: 1 mg, UNK
  6. AMLODIPINE [Concomitant]
     Dosage: 2.5 mg, UNK
  7. HYDROCHLOROTH [Concomitant]
     Dosage: 12.5 mg, UNK

REACTIONS (1)
  - Fatigue [Unknown]
